FAERS Safety Report 24825458 (Version 1)
Quarter: 2025Q1

REPORT INFORMATION
  Report Type: Spontaneous
  Country: US (occurrence: US)
  Receive Date: 20250109
  Receipt Date: 20250109
  Transmission Date: 20250409
  Serious: Yes (Hospitalization, Other)
  Sender: PFIZER
  Company Number: US-PFIZER INC-PV202400170902

PATIENT
  Age: 33 Year
  Sex: Male

DRUGS (1)
  1. KETAMINE HYDROCHLORIDE [Suspect]
     Active Substance: KETAMINE HYDROCHLORIDE

REACTIONS (4)
  - Liver injury [Unknown]
  - Biliary tract disorder [Unknown]
  - Granuloma [Unknown]
  - Drug abuse [Unknown]
